FAERS Safety Report 7527823-4 (Version None)
Quarter: 2011Q2

REPORT INFORMATION
  Report Type: 
  Country: None (occurrence: None)
  Receive Date: 20110527
  Receipt Date: 20110518
  Transmission Date: 20111010
  Serious: Yes (Other)
  Sender: FDA-Public Use
  Company Number: MIN-00729

PATIENT
  Age: 60 Year
  Sex: Female

DRUGS (6)
  1. PREDNISONE [Suspect]
     Indication: PEMPHIGOID
     Dosage: 20 MG DAILY, ORAL (INCREASED TO 30 MG DAILY, DECREASED TO 15 MG DAILY, DECREASED TO 10 MG DAILY, DEC
     Route: 048
     Dates: start: 20090501
  2. MINOCYCLINE HCL [Suspect]
     Indication: PEMPHIGOID
     Dosage: 200 MG DAILY
     Dates: start: 20090501
  3. CONSERVATIVE RADIOTHERAPY [Suspect]
     Indication: BREAST CANCER
     Dosage: 50 GY IN 25 FRACTION, TANGENTIAL FIELDS USING A 4-MV PHOTON LINEAR ACCELERATOR
     Dates: start: 20091201
  4. AROMATASE INHIBITOR (AI) [Suspect]
     Indication: HORMONE THERAPY
     Dates: start: 20100101
  5. METHYLPREDNISOLONE ACETATE [Suspect]
     Indication: PEMPHIGOID
     Dosage: 500 MG, INTRAVENOUSLY
     Route: 042
  6. METHYLPREDNISOLONE ACETATE [Suspect]
     Indication: CONDITION AGGRAVATED
     Dosage: 500 MG, INTRAVENOUSLY
     Route: 042

REACTIONS (7)
  - KOEBNER PHENOMENON [None]
  - PIGMENTATION DISORDER [None]
  - ERYTHEMA [None]
  - CONDITION AGGRAVATED [None]
  - PEMPHIGOID [None]
  - BREAST CANCER [None]
  - OESTROGEN RECEPTOR ASSAY POSITIVE [None]
